FAERS Safety Report 8063032-0 (Version None)
Quarter: 2012Q1

REPORT INFORMATION
  Report Type: 
  Country: None (occurrence: None)
  Receive Date: 20120123
  Receipt Date: 20120116
  Transmission Date: 20120608
  Serious: Yes (Death, Hospitalization, Other)
  Sender: FDA-Public Use
  Company Number: US-SANOFI-AVENTIS-A03200607586

PATIENT
  Age: 74 Year
  Sex: Male

DRUGS (25)
  1. LANOXIN [Concomitant]
  2. SKELAXIN [Concomitant]
  3. CLOPIDOGREL BISULFATE [Suspect]
     Dosage: UNIT DOSE: 75 MG
     Route: 048
     Dates: start: 20021101
  4. ZOCOR [Concomitant]
  5. PROCARDIA [Concomitant]
  6. TOPROL-XL [Concomitant]
  7. LASIX [Concomitant]
  8. METHYLPREDNISOLONE [Concomitant]
  9. CLOPIDOGREL BISULFATE [Suspect]
     Route: 048
     Dates: start: 20030701, end: 20030701
  10. COZAAR [Concomitant]
  11. PREVACID [Concomitant]
  12. DIGOXIN [Concomitant]
  13. CLOPIDOGREL BISULFATE [Suspect]
     Route: 048
     Dates: start: 20030702
  14. CLOPIDOGREL BISULFATE [Suspect]
     Route: 048
     Dates: start: 20030702
  15. ASPIRIN [Suspect]
     Route: 048
     Dates: start: 20021101
  16. NORVASC [Concomitant]
  17. CELEBREX [Concomitant]
  18. CLOPIDOGREL BISULFATE [Suspect]
     Route: 048
     Dates: start: 20030701, end: 20030701
  19. BEXTRA [Concomitant]
  20. CLOPIDOGREL BISULFATE [Suspect]
     Indication: STENT PLACEMENT
     Dosage: UNIT DOSE: 75 MG
     Route: 048
     Dates: start: 20021101
  21. ASPIRIN [Suspect]
     Indication: STENT PLACEMENT
     Route: 048
     Dates: start: 20021101
  22. TERAZOSIN HCL [Concomitant]
  23. VITAMIN TAB [Concomitant]
  24. PILOCARPINE [Concomitant]
  25. TIMOPTIC [Concomitant]

REACTIONS (10)
  - BILIARY COLIC [None]
  - BRAIN HERNIATION [None]
  - SUBDURAL HAEMATOMA [None]
  - BRAIN INJURY [None]
  - RESPIRATORY FAILURE [None]
  - GASTRITIS [None]
  - CHOLECYSTITIS ACUTE [None]
  - BRAIN STEM SYNDROME [None]
  - COMA [None]
  - POSTURING [None]
